FAERS Safety Report 9004942 (Version 4)
Quarter: 2013Q1

REPORT INFORMATION
  Report Type: Report from Study
  Country: US (occurrence: US)
  Receive Date: 20130109
  Receipt Date: 20130319
  Transmission Date: 20140127
  Serious: Yes (Hospitalization)
  Sender: FDA-Public Use
  Company Number: US-GENZYME-CLOF-1002417

PATIENT
  Age: 56 Year
  Sex: Male
  Weight: 101.1 kg

DRUGS (28)
  1. CLOLAR [Suspect]
     Indication: ACUTE MYELOID LEUKAEMIA
     Dosage: 92 MG, QD
     Route: 042
     Dates: start: 20120927, end: 20121001
  2. BUSULFAN [Suspect]
     Indication: ACUTE MYELOID LEUKAEMIA
     Dosage: UNK, QD, (285/ 390 MG)
     Route: 042
     Dates: start: 20120928, end: 20121001
  3. CORTICOSTEROID NOS [Suspect]
     Indication: PRODUCT USED FOR UNKNOWN INDICATION
     Dosage: UNK
     Route: 065
  4. ACYCLOVIR [Concomitant]
     Indication: PRODUCT USED FOR UNKNOWN INDICATION
     Dosage: 400 MG, BID
     Route: 065
  5. BUSPIRONE [Concomitant]
     Indication: PRODUCT USED FOR UNKNOWN INDICATION
     Dosage: 15 MG, BID
     Route: 048
  6. COLECALCIFEROL [Concomitant]
     Indication: PRODUCT USED FOR UNKNOWN INDICATION
     Dosage: 1000 U, QD
     Route: 065
  7. CLONAZEPAM [Concomitant]
     Indication: PRODUCT USED FOR UNKNOWN INDICATION
     Dosage: UNK
     Route: 065
     Dates: end: 20121231
  8. RESTASIS [Concomitant]
     Indication: PRODUCT USED FOR UNKNOWN INDICATION
     Dosage: 0.05 %, OU, BID
     Route: 065
  9. LEXAPRO [Concomitant]
     Indication: PRODUCT USED FOR UNKNOWN INDICATION
     Dosage: 20 MG, QD
     Route: 065
  10. LEVSIN [Concomitant]
     Indication: ABDOMINAL PAIN
     Dosage: 0.125 MG, QID
     Route: 048
  11. LANTUS [Concomitant]
     Indication: PRODUCT USED FOR UNKNOWN INDICATION
     Dosage: 10 U, BID
     Route: 065
  12. LANTUS [Concomitant]
     Dosage: DOSE DECREASED
     Route: 065
     Dates: start: 20121231
  13. INSULIN LISPRO [Concomitant]
     Indication: PRODUCT USED FOR UNKNOWN INDICATION
     Dosage: QAC AND QHS
     Route: 058
  14. LEVAQUIN [Concomitant]
     Indication: PRODUCT USED FOR UNKNOWN INDICATION
     Dosage: 500 MG, QD
     Route: 048
  15. LOPERAMIDE [Concomitant]
     Indication: DIARRHOEA
     Dosage: 1-2 CAPSULE, 2 MG/ Q4-6HR, PRN
     Route: 048
  16. LORAZEPAM [Concomitant]
     Indication: NAUSEA
     Dosage: 1-2 TABLETS, 0.5 MG, PRN (Q6HR)
     Route: 048
  17. MAGNESIUM SULFATE [Concomitant]
     Indication: PRODUCT USED FOR UNKNOWN INDICATION
     Dosage: 5 G, QD
     Route: 042
  18. MICONAZOLE [Concomitant]
     Indication: PRODUCT USED FOR UNKNOWN INDICATION
     Dosage: UNK, BID
     Route: 061
  19. PRILOSEC [Concomitant]
     Indication: PRODUCT USED FOR UNKNOWN INDICATION
     Dosage: 20 MG, BID
     Route: 048
  20. OXYCODONE [Concomitant]
     Indication: PAIN
     Dosage: 5 MG, PRN (Q6HR)
     Route: 048
  21. PREDNISONE [Concomitant]
     Indication: PRODUCT USED FOR UNKNOWN INDICATION
     Dosage: 40 MG, QD
     Route: 065
  22. PREDNISONE [Concomitant]
     Dosage: 30 MG, QD (TAPERED)
     Route: 048
     Dates: start: 20121231
  23. SIMETHICONE [Concomitant]
     Indication: PRODUCT USED FOR UNKNOWN INDICATION
     Dosage: 80 MG, PRN (Q6-8HR)
     Route: 048
  24. BACTRIM [Concomitant]
     Indication: PRODUCT USED FOR UNKNOWN INDICATION
     Dosage: 1 TABLET, QD
     Route: 048
  25. TACROLIMUS [Concomitant]
     Indication: PRODUCT USED FOR UNKNOWN INDICATION
     Dosage: 1.5 MG, BID
     Route: 048
  26. ACTIGALL [Concomitant]
     Indication: PRODUCT USED FOR UNKNOWN INDICATION
     Dosage: 300 UNK, BID
     Route: 065
  27. VORICONAZOLE [Concomitant]
     Indication: PRODUCT USED FOR UNKNOWN INDICATION
     Dosage: 200 MG, BID
     Route: 048
  28. TPN [Concomitant]
     Indication: PRODUCT USED FOR UNKNOWN INDICATION
     Dosage: UNK
     Route: 065
     Dates: start: 20121205

REACTIONS (6)
  - Fall [Unknown]
  - Dry mouth [Unknown]
  - Aphasia [Unknown]
  - Graft versus host disease [Recovered/Resolved]
  - Muscular weakness [Unknown]
  - Confusional state [Unknown]
